FAERS Safety Report 26053969 (Version 2)
Quarter: 2025Q4

REPORT INFORMATION
  Report Type: Spontaneous
  Country: CL (occurrence: CL)
  Receive Date: 20251117
  Receipt Date: 20251202
  Transmission Date: 20260118
  Serious: Yes (Hospitalization, Other)
  Sender: NOVARTIS
  Company Number: CL-002147023-NVSC2025CL176313

PATIENT
  Sex: Male

DRUGS (1)
  1. SCEMBLIX [Suspect]
     Active Substance: ASCIMINIB HYDROCHLORIDE
     Indication: Product used for unknown indication
     Dosage: 80 MG
     Route: 065

REACTIONS (4)
  - Blast crisis in myelogenous leukaemia [Unknown]
  - Depressed level of consciousness [Unknown]
  - Hyperleukocytosis [Unknown]
  - Blood viscosity increased [Unknown]
